FAERS Safety Report 9494475 (Version 2)
Quarter: 2013Q3

REPORT INFORMATION
  Report Type: Spontaneous
  Country: GB (occurrence: GB)
  Receive Date: 20130903
  Receipt Date: 20130905
  Transmission Date: 20140515
  Serious: Yes (Other)
  Sender: FDA-Public Use
  Company Number: GB-ASTELLAS-2013EU007203

PATIENT
  Sex: Female
  Weight: 67 kg

DRUGS (4)
  1. VESICARE [Suspect]
     Indication: LOWER URINARY TRACT SYMPTOMS
     Dosage: 5 MG, UID/QD
     Route: 048
     Dates: start: 20130213, end: 20130722
  2. SPIRIVA [Concomitant]
     Dosage: UNK
     Route: 065
  3. SERETIDE [Concomitant]
     Indication: CHRONIC OBSTRUCTIVE PULMONARY DISEASE
     Dosage: UNK
     Route: 065
  4. SALBUTAMOL [Concomitant]
     Indication: CHRONIC OBSTRUCTIVE PULMONARY DISEASE
     Dosage: UNK
     Route: 065

REACTIONS (3)
  - Lower respiratory tract infection [Not Recovered/Not Resolved]
  - Ocular hyperaemia [Recovering/Resolving]
  - Dyspnoea [Unknown]
